FAERS Safety Report 7064724-2 (Version None)
Quarter: 2010Q4

REPORT INFORMATION
  Report Type: 
  Country: None (occurrence: None)
  Receive Date: 20101019
  Receipt Date: 20101007
  Transmission Date: 20110411
  Serious: Yes (Hospitalization)
  Sender: FDA-Public Use
  Company Number: 020004

PATIENT
  Sex: Male
  Weight: 70.7 kg

DRUGS (2)
  1. VIMPAT [Suspect]
     Indication: EPILEPSY
     Dosage: 50 MG QD ORAL
     Route: 048
     Dates: start: 20100914, end: 20100929
  2. VALPROATE SODIUM [Suspect]
     Indication: EPILEPSY
     Dosage: 600 MG TID ORAL
     Route: 048
     Dates: start: 20100914

REACTIONS (2)
  - PULSE ABSENT [None]
  - SYNCOPE [None]
